FAERS Safety Report 5135459-8 (Version None)
Quarter: 2006Q4

REPORT INFORMATION
  Report Type: 
  Country: None (occurrence: None)
  Receive Date: 20061024
  Receipt Date: 20061024
  Transmission Date: 20070319
  Serious: Yes (Hospitalization)
  Sender: FDA-Public Use
  Company Number: None

PATIENT
  Age: 58 Year
  Sex: Male
  Weight: 76.1 kg

DRUGS (8)
  1. CLINDAMYCIN [Suspect]
     Indication: LOCALISED INFECTION
     Dates: start: 20060804, end: 20060806
  2. VANCOMYCIN [Suspect]
     Dates: start: 20060630, end: 20060804
  3. LINEZOLID [Suspect]
     Dates: start: 20060806, end: 20060815
  4. HYDROCODONE BITARTRATE + ACETAMINOPHEN [Concomitant]
  5. ENSURE PLUS [Concomitant]
  6. OCTREOTIDE ACETATE [Concomitant]
  7. CITALOPRAM HYDROBROMIDE [Concomitant]
  8. CALCITONIN-SALMON [Concomitant]

REACTIONS (2)
  - RASH GENERALISED [None]
  - SWOLLEN TONGUE [None]
